FAERS Safety Report 4881045-4 (Version None)
Quarter: 2005Q4

REPORT INFORMATION
  Report Type: 
  Country: None (occurrence: None)
  Receive Date: 20051223
  Receipt Date: 20050922
  Transmission Date: 20060501
  Serious: No
  Sender: FDA-Public Use
  Company Number: 05P-163-0311724-00

PATIENT
  Age: 36 Year
  Sex: Female

DRUGS (6)
  1. HUMIRA [Suspect]
     Indication: RHEUMATOID ARTHRITIS
     Dosage: 40 MG, 1 IN 2 WK, SUBCUTANEOUS
     Route: 058
     Dates: start: 20050902
  2. LISINOPRIL [Concomitant]
  3. CONLUNETT [Concomitant]
  4. STAHIST [Concomitant]
  5. DURAHIST [Concomitant]
  6. FEXOFENADINE HYDROCHLORIDE [Concomitant]

REACTIONS (2)
  - JOINT SWELLING [None]
  - URTICARIA [None]
